FAERS Safety Report 7471933-7 (Version None)
Quarter: 2011Q2

REPORT INFORMATION
  Report Type: 
  Country: None (occurrence: None)
  Receive Date: 20110511
  Receipt Date: 20100730
  Transmission Date: 20111010
  Serious: No
  Sender: FDA-Public Use
  Company Number: A0873234A

PATIENT
  Age: 63 Year
  Sex: Female

DRUGS (2)
  1. TYKERB [Suspect]
     Indication: BREAST CANCER
     Dosage: 250TAB PER DAY
     Route: 048
  2. UNKNOWN [Concomitant]

REACTIONS (2)
  - NAUSEA [None]
  - DIARRHOEA [None]
